FAERS Safety Report 5249850-2 (Version None)
Quarter: 2007Q1

REPORT INFORMATION
  Report Type: 
  Country: None (occurrence: None)
  Receive Date: 20070228
  Receipt Date: 20070221
  Transmission Date: 20070707
  Serious: Yes (Hospitalization, Other)
  Sender: FDA-Public Use
  Company Number: CH-GLAXOSMITHKLINE-B0452438A

PATIENT
  Age: 20 Year
  Sex: Female
  Weight: 54 kg

DRUGS (2)
  1. LAMICTAL [Suspect]
     Indication: EPILEPSY
     Route: 048
     Dates: start: 20070101, end: 20070109
  2. DEPAKENE [Concomitant]
     Indication: EPILEPSY
     Dosage: 300MG TWICE PER DAY
     Route: 048
     Dates: start: 20060729

REACTIONS (18)
  - BLISTER [None]
  - CONJUNCTIVITIS [None]
  - COOMBS NEGATIVE HAEMOLYTIC ANAEMIA [None]
  - DYSPHAGIA [None]
  - LIP EROSION [None]
  - MOUTH PLAQUE [None]
  - MUCOUS MEMBRANE DISORDER [None]
  - PHARYNGITIS [None]
  - POST INFLAMMATORY PIGMENTATION CHANGE [None]
  - PRURIGO [None]
  - PYREXIA [None]
  - RASH [None]
  - RASH MACULO-PAPULAR [None]
  - SPHEROCYTIC ANAEMIA [None]
  - SPLENOMEGALY [None]
  - STEVENS-JOHNSON SYNDROME [None]
  - TOXIC EPIDERMAL NECROLYSIS [None]
  - VAGINAL EROSION [None]
